FAERS Safety Report 5464616-6 (Version None)
Quarter: 2007Q3

REPORT INFORMATION
  Report Type: 
  Country: None (occurrence: None)
  Receive Date: 20070921
  Receipt Date: 20070911
  Transmission Date: 20080115
  Serious: Yes (Hospitalization)
  Sender: FDA-Public Use
  Company Number: BR-PFIZER INC-2007077123

PATIENT
  Sex: Female

DRUGS (1)
  1. XALATAN [Suspect]
     Route: 047

REACTIONS (1)
  - CARDIAC DISORDER [None]
